FAERS Safety Report 20237527 (Version 1)
Quarter: 2021Q4

REPORT INFORMATION
  Report Type: Report from Study
  Country: GB (occurrence: GB)
  Receive Date: 20211228
  Receipt Date: 20211228
  Transmission Date: 20220303
  Serious: Yes (Hospitalization)
  Sender: FDA-Public Use
  Company Number: GB-APELLIS-01099

PATIENT
  Sex: Male

DRUGS (4)
  1. PEGCETACOPLAN [Suspect]
     Active Substance: PEGCETACOPLAN
     Indication: Paroxysmal nocturnal haemoglobinuria
     Route: 058
     Dates: end: 20211212
  2. 84562 (GLOBALC3Sep21): Penicillin V [Concomitant]
     Indication: Product used for unknown indication
  3. 184614 (GLOBALC3Sep21): Folic acid [Concomitant]
     Indication: Product used for unknown indication
  4. 1114579 (GLOBALC3Sep21): Exjade [Concomitant]
     Indication: Product used for unknown indication

REACTIONS (1)
  - Acute myocardial infarction [Recovering/Resolving]

NARRATIVE: CASE EVENT DATE: 20211213
